FAERS Safety Report 9112262 (Version 1)
Quarter: 2013Q1

REPORT INFORMATION
  Report Type: Spontaneous
  Country: US (occurrence: US)
  Receive Date: 20130219
  Receipt Date: 20130219
  Transmission Date: 20140127
  Serious: No
  Sender: FDA-Public Use
  Company Number: US-BRISTOL-MYERS SQUIBB COMPANY-16850703

PATIENT
  Age: 56 Year
  Sex: Male

DRUGS (1)
  1. ABATACEPT SUBQ INJECTION 125MG/ML [Suspect]
     Indication: RHEUMATOID ARTHRITIS
     Dosage: LAST INF:28JUL2012,TAKING ORENCIA FOR ORENCIA NOW FOR 6 WEEKS
     Route: 058

REACTIONS (2)
  - Rheumatoid arthritis [Unknown]
  - Incorrect storage of drug [Unknown]
